FAERS Safety Report 6640917-0 (Version None)
Quarter: 2010Q1

REPORT INFORMATION
  Report Type: 
  Country: None (occurrence: None)
  Receive Date: 20100318
  Receipt Date: 20100316
  Transmission Date: 20100710
  Serious: Yes (Other)
  Sender: FDA-Public Use
  Company Number: US-ROXANE LABORATORIES, INC.-2010-RO-00272RO

PATIENT
  Age: 6 Month
  Sex: Male

DRUGS (10)
  1. IPRATROPIUM BROMIDE [Suspect]
  2. PREDNISONE [Suspect]
     Indication: PNEUMONIA
  3. PREDNISONE [Suspect]
     Indication: INFLUENZA
  4. PREDNISONE [Suspect]
     Indication: BRONCHIAL HYPERREACTIVITY
  5. FLUTICASONE PROPIONATE [Suspect]
  6. AMOXICILLIN AND CLAVULANATE POTASSIUM [Suspect]
     Indication: PNEUMONIA
  7. AMOXICILLIN AND CLAVULANATE POTASSIUM [Suspect]
     Indication: INFLUENZA
  8. AMOXICILLIN AND CLAVULANATE POTASSIUM [Suspect]
     Indication: BRONCHIAL HYPERREACTIVITY
  9. ALBUTEROL [Suspect]
  10. LANSOPRAZOL [Suspect]

REACTIONS (7)
  - BRONCHIAL HYPERREACTIVITY [None]
  - INFLUENZA [None]
  - MYDRIASIS [None]
  - PNEUMONIA [None]
  - PUPILS UNEQUAL [None]
  - STARING [None]
  - UNRESPONSIVE TO STIMULI [None]
